FAERS Safety Report 11905056 (Version 2)
Quarter: 2018Q2

REPORT INFORMATION
  Report Type: Spontaneous
  Country: US (occurrence: US)
  Receive Date: 20160109
  Receipt Date: 20180421
  Transmission Date: 20180711
  Serious: No
  Sender: FDA-Public Use
  Company Number: US-JNJFOC-20151209536

PATIENT
  Age: 5 Year
  Sex: Male

DRUGS (6)
  1. RISPERDAL [Suspect]
     Active Substance: RISPERIDONE
     Indication: AFFECTIVE DISORDER
     Dosage: 01 MG TO 03 MG
     Route: 048
     Dates: start: 20060908, end: 20130504
  2. RISPERDAL [Suspect]
     Active Substance: RISPERIDONE
     Indication: AUTISM SPECTRUM DISORDER
     Dosage: 01 MG TO 03 MG
     Route: 048
     Dates: start: 20060908, end: 20130504
  3. RISPERDAL [Suspect]
     Active Substance: RISPERIDONE
     Indication: AFFECTIVE DISORDER
     Dosage: 0.5 MG TO 01 MG
     Route: 048
     Dates: start: 20020522, end: 20021022
  4. INVEGA [Suspect]
     Active Substance: PALIPERIDONE
     Indication: AUTISM SPECTRUM DISORDER
     Route: 048
     Dates: start: 20090121, end: 20090217
  5. RISPERDAL [Suspect]
     Active Substance: RISPERIDONE
     Indication: AUTISM SPECTRUM DISORDER
     Dosage: 0.5 MG TO 01 MG
     Route: 048
     Dates: start: 20020522, end: 20021022
  6. INVEGA [Suspect]
     Active Substance: PALIPERIDONE
     Indication: AFFECTIVE DISORDER
     Route: 048
     Dates: start: 20090121, end: 20090217

REACTIONS (5)
  - Product use in unapproved indication [Unknown]
  - Gynaecomastia [Unknown]
  - Off label use [Unknown]
  - Obesity [Recovering/Resolving]
  - Sedation [Unknown]

NARRATIVE: CASE EVENT DATE: 20020627
